FAERS Safety Report 9485239 (Version 2)
Quarter: 2013Q3

REPORT INFORMATION
  Report Type: Spontaneous
  Country: US (occurrence: US)
  Receive Date: 20130828
  Receipt Date: 20130920
  Transmission Date: 20140515
  Serious: Yes (Hospitalization)
  Sender: FDA-Public Use
  Company Number: US-BAXTER-2013BAX033634

PATIENT
  Age: 7 Year
  Sex: 0

DRUGS (1)
  1. VANCOMYCIN INJECTION, USP [Suspect]
     Indication: PRODUCT USED FOR UNKNOWN INDICATION
     Route: 042
     Dates: start: 20130717

REACTIONS (3)
  - Red man syndrome [Recovered/Resolved]
  - Incorrect drug administration rate [Recovered/Resolved]
  - Medication error [Recovered/Resolved]
